FAERS Safety Report 4479715-5 (Version None)
Quarter: 2004Q4

REPORT INFORMATION
  Report Type: 
  Country: None (occurrence: None)
  Receive Date: 20041020
  Receipt Date: 20041012
  Transmission Date: 20050328
  Serious: Yes (Hospitalization)
  Sender: FDA-Public Use
  Company Number: DE-ROCHE-383032

PATIENT
  Sex: Female

DRUGS (2)
  1. XELODA [Suspect]
     Indication: DRUG USE FOR UNKNOWN INDICATION
     Dosage: UNIT: MG / M^3.
     Route: 048
  2. NAVELBINE [Concomitant]
     Dosage: UNIT: MG / M^3.

REACTIONS (1)
  - EXTRUSION OF DEVICE [None]
